APPROVED DRUG PRODUCT: CLEOCIN
Active Ingredient: CLINDAMYCIN PALMITATE HYDROCHLORIDE
Strength: EQ 75MG BASE/5ML
Dosage Form/Route: FOR SOLUTION;ORAL
Application: A062644 | Product #001 | TE Code: AA
Applicant: PFIZER INC
Approved: Apr 7, 1986 | RLD: No | RS: Yes | Type: RX